FAERS Safety Report 22301228 (Version 1)
Quarter: 2023Q2

REPORT INFORMATION
  Report Type: Spontaneous
  Country: US (occurrence: US)
  Receive Date: 20230509
  Receipt Date: 20230509
  Transmission Date: 20230721
  Serious: No
  Sender: FDA-Public Use
  Company Number: US-SANOFI-01602067

PATIENT
  Age: 68 Year
  Sex: Female

DRUGS (2)
  1. DUPIXENT [Suspect]
     Active Substance: DUPILUMAB
     Indication: Dermatitis atopic
     Dosage: 300 MG, QOW
  2. MELOXICAM [Suspect]
     Active Substance: MELOXICAM
     Dosage: UNK

REACTIONS (3)
  - Urticaria [Unknown]
  - Lip swelling [Unknown]
  - Lip discolouration [Unknown]
